FAERS Safety Report 8286373-0 (Version None)
Quarter: 2012Q2

REPORT INFORMATION
  Report Type: 
  Country: None (occurrence: None)
  Receive Date: 20120411
  Receipt Date: 20120405
  Transmission Date: 20120825
  Serious: Yes (Death, Life-Threatening, Hospitalization)
  Sender: FDA-Public Use
  Company Number: 2012SP014867

PATIENT
  Age: 59 Year
  Sex: Male

DRUGS (9)
  1. GLYBURIDE [Concomitant]
  2. NADOL [Concomitant]
  3. LASIX [Concomitant]
  4. RIBAVIRIN [Suspect]
     Indication: HEPATITIS C
     Dosage: 1000 MG;QD;PO
     Route: 048
     Dates: start: 20111107, end: 20120313
  5. DIAZEPAM [Concomitant]
  6. EPREX [Concomitant]
  7. PEGASYS [Suspect]
     Indication: HEPATITIS C
     Dosage: 180 MCG;QW;SC
     Route: 058
     Dates: start: 20111107, end: 20120313
  8. VICTRELIS [Suspect]
     Indication: HEPATITIS C
     Dosage: 800 MG;Q8H;PO
     Route: 048
     Dates: start: 20111205, end: 20120313
  9. METFORMIN HCL [Concomitant]

REACTIONS (11)
  - CONDITION AGGRAVATED [None]
  - MULTI-ORGAN FAILURE [None]
  - CONFUSIONAL STATE [None]
  - ANAEMIA [None]
  - ASCITES [None]
  - PLATELET COUNT DECREASED [None]
  - SOMNOLENCE [None]
  - LOSS OF CONSCIOUSNESS [None]
  - SEPTIC SHOCK [None]
  - RENAL FAILURE [None]
  - KETOACIDOSIS [None]
